FAERS Safety Report 8092783-7 (Version None)
Quarter: 2012Q1

REPORT INFORMATION
  Report Type: 
  Country: None (occurrence: None)
  Receive Date: 20120128
  Receipt Date: 20110815
  Transmission Date: 20120608
  Serious: No
  Sender: FDA-Public Use
  Company Number: US-ABBOTT-11P-163-0846237-00

PATIENT
  Sex: Female
  Weight: 72.64 kg

DRUGS (3)
  1. HUMIRA [Suspect]
     Indication: RHEUMATOID ARTHRITIS
     Dates: start: 20110628
  2. HUMIRA [Suspect]
     Indication: SARCOIDOSIS
  3. IBUPROFEN (ADVIL) [Concomitant]
     Indication: PAIN
     Dosage: AS NEEDED

REACTIONS (3)
  - OEDEMA PERIPHERAL [None]
  - BLOOD GLUCOSE INCREASED [None]
  - THERAPEUTIC RESPONSE DECREASED [None]
